FAERS Safety Report 25351825 (Version 1)
Quarter: 2025Q2

REPORT INFORMATION
  Report Type: Report from Study
  Country: GB (occurrence: GB)
  Receive Date: 20250523
  Receipt Date: 20250523
  Transmission Date: 20250717
  Serious: Yes (Hospitalization)
  Sender: ABBVIE
  Company Number: GB-ABBVIE-6289947

PATIENT
  Age: 57 Year
  Sex: Female

DRUGS (1)
  1. SKYRIZI [Suspect]
     Active Substance: RISANKIZUMAB-RZAA
     Indication: Psoriasis
     Route: 058
     Dates: end: 2025

REACTIONS (6)
  - Erythema [Unknown]
  - Skin swelling [Unknown]
  - Skin discharge [Unknown]
  - Biopsy site unspecified abnormal [Unknown]
  - Psoriasis [Unknown]
  - Drug ineffective [Unknown]

NARRATIVE: CASE EVENT DATE: 20250101
